FAERS Safety Report 4817913-9 (Version None)
Quarter: 2005Q3

REPORT INFORMATION
  Report Type: 
  Country: None (occurrence: None)
  Receive Date: 20050929
  Receipt Date: 20050822
  Transmission Date: 20060218
  Serious: No
  Sender: FDA-Public Use
  Company Number: 05P-163-0305046-00

PATIENT
  Age: 36 Year
  Sex: Female
  Weight: 70.3075 kg

DRUGS (5)
  1. HUMIRA [Suspect]
     Indication: ANKYLOSING SPONDYLITIS
     Dosage: 40 MG, 1 IN 2 WK, SUBCUTANEOUS
     Route: 058
     Dates: start: 20050401, end: 20050609
  2. CRYSELLE [Concomitant]
  3. METHOTREXATE [Concomitant]
  4. IBUPROFEN [Concomitant]
  5. FOLIC ACID [Concomitant]

REACTIONS (4)
  - CHEST DISCOMFORT [None]
  - DYSPNOEA [None]
  - NAIL INFECTION [None]
  - UPPER RESPIRATORY TRACT INFECTION [None]
